FAERS Safety Report 8476915 (Version 3)
Quarter: 2013Q2

REPORT INFORMATION
  Report Type: Spontaneous
  Country: FR (occurrence: FR)
  Receive Date: 20120326
  Receipt Date: 20130405
  Transmission Date: 20140414
  Serious: Yes (Death)
  Sender: FDA-Public Use
  Company Number: FR-B.I. PHARMACEUTICALS,INC./RIDGEFIELD-2012-FF-00361FF

PATIENT
  Age: 85 Year
  Sex: Female

DRUGS (4)
  1. PRADAXA [Suspect]
     Indication: THROMBOSIS PROPHYLAXIS
     Dosage: 150 MG
     Route: 048
     Dates: start: 20120227, end: 20120229
  2. ANTALGIC [Concomitant]
  3. NSAIDS [Concomitant]
  4. INEXIUM [Concomitant]

REACTIONS (3)
  - Haemorrhage [Fatal]
  - Melaena [Fatal]
  - Gastrointestinal haemorrhage [Fatal]
